FAERS Safety Report 18815850 (Version 1)
Quarter: 2021Q1

REPORT INFORMATION
  Report Type: Spontaneous
  Country: US (occurrence: US)
  Receive Date: 20210130
  Receipt Date: 20210130
  Transmission Date: 20210419
  Serious: Yes (Hospitalization)
  Sender: FDA-Public Use
  Company Number: None

PATIENT
  Age: 62 Year
  Sex: Male
  Weight: 96 kg

DRUGS (3)
  1. RITUXIMAB (MOAB C2B8 ANTI CD20, CHIMERIC) [Suspect]
     Active Substance: RITUXIMAB
     Dates: end: 20201217
  2. CYTARABINE. [Suspect]
     Active Substance: CYTARABINE
     Dates: end: 20201218
  3. ACALABRUTINIB. [Suspect]
     Active Substance: ACALABRUTINIB
     Dates: end: 20201224

REACTIONS (8)
  - Stomatitis [None]
  - Palpitations [None]
  - Haemoglobin decreased [None]
  - Heart rate increased [None]
  - White blood cell count decreased [None]
  - Pyrexia [None]
  - Chills [None]
  - Fatigue [None]

NARRATIVE: CASE EVENT DATE: 20201229
